FAERS Safety Report 8889746 (Version 2)
Quarter: 2012Q4

REPORT INFORMATION
  Report Type: 
  Country: DK (occurrence: JP)
  Receive Date: 20121107
  Receipt Date: 20121120
  Transmission Date: 20130627
  Serious: Yes (Death, Hospitalization)
  Sender: FDA-Public Use
  Company Number: JP-SHIRE-ALL1-2012-05379

PATIENT
  Age: 84 Year
  Sex: Male

DRUGS (2)
  1. MIDON [Suspect]
     Dosage: 4 mg (2 mg tablets), Unknown
     Route: 048
  2. FLUDROCORTISONE [Suspect]
     Indication: ORTHOSTATIC HYPOTENSION
     Dosage: 0.1 mg, Unknown
     Route: 065

REACTIONS (2)
  - Pneumonia aspiration [Fatal]
  - Hypertensive encephalopathy [Recovering/Resolving]
